FAERS Safety Report 4620239-X (Version None)
Quarter: 2005Q1

REPORT INFORMATION
  Report Type: 
  Country: None (occurrence: None)
  Receive Date: 20050322
  Receipt Date: 20050322
  Transmission Date: 20050727
  Serious: No
  Sender: FDA-Public Use
  Company Number: None

PATIENT
  Sex: Male
  Weight: 92.9874 kg

DRUGS (3)
  1. ADVICOR [Suspect]
     Indication: CORONARY ARTERY DISEASE
     Dosage: THREE A DAY ORAL
     Route: 048
     Dates: start: 20050215, end: 20050318
  2. ADVICOR [Suspect]
     Indication: HYPERCHOLESTEROLAEMIA
     Dosage: THREE A DAY ORAL
     Route: 048
     Dates: start: 20050215, end: 20050318
  3. ADVICOR [Suspect]
     Indication: HYPOLIPIDAEMIA
     Dosage: THREE A DAY ORAL
     Route: 048
     Dates: start: 20050215, end: 20050318

REACTIONS (1)
  - BLOOD CREATINE PHOSPHOKINASE INCREASED [None]
